FAERS Safety Report 16238430 (Version 1)
Quarter: 2019Q2

REPORT INFORMATION
  Report Type: Spontaneous
  Country: US (occurrence: US)
  Receive Date: 20190321
  Receipt Date: 20190321
  Transmission Date: 20190711
  Serious: No
  Sender: FDA-Public Use
  Company Number: None

PATIENT
  Age: 29 Year
  Sex: Male

DRUGS (1)
  1. TALTZ [Suspect]
     Active Substance: IXEKIZUMAB
     Dates: start: 201802

REACTIONS (3)
  - Economic problem [None]
  - Therapy cessation [None]
  - Disease recurrence [None]

NARRATIVE: CASE EVENT DATE: 20190321
